FAERS Safety Report 18341259 (Version 1)
Quarter: 2020Q4

REPORT INFORMATION
  Report Type: Spontaneous
  Country: JP (occurrence: JP)
  Receive Date: 20201003
  Receipt Date: 20201003
  Transmission Date: 20210113
  Serious: No
  Sender: FDA-Public Use
  Company Number: JP-LUPIN PHARMACEUTICALS INC.-2020-05069

PATIENT
  Age: 13 Year
  Sex: Male

DRUGS (4)
  1. BETAMETHASONE. [Suspect]
     Active Substance: BETAMETHASONE
     Dosage: 1 MILLIGRAM, QD
     Route: 065
  2. BETAMETHASONE. [Suspect]
     Active Substance: BETAMETHASONE
     Dosage: 2 MILLIGRAM, QD
     Route: 065
  3. BETAMETHASONE. [Suspect]
     Active Substance: BETAMETHASONE
     Dosage: 0.5 MILLIGRAM, QD
     Route: 065
  4. BETAMETHASONE. [Suspect]
     Active Substance: BETAMETHASONE
     Indication: GLIOMA
     Dosage: 4 MILLIGRAM, QD
     Route: 065

REACTIONS (1)
  - Injection site erythema [Unknown]
